FAERS Safety Report 9910907 (Version 5)
Quarter: 2014Q2

REPORT INFORMATION
  Report Type: Spontaneous
  Country: US (occurrence: US)
  Receive Date: 20140219
  Receipt Date: 20140501
  Transmission Date: 20141212
  Serious: No
  Sender: FDA-Public Use
  Company Number: US-009507513-1402USA008439

PATIENT
  Age: 60 Year
  Sex: Male

DRUGS (16)
  1. PEGINTRON [Suspect]
     Indication: CHRONIC HEPATITIS C
     Dosage: REDIPEN
     Route: 058
     Dates: start: 20140214
  2. REBETOL [Suspect]
     Indication: CHRONIC HEPATITIS C
     Dosage: 2 IN AM, 3 IN PM
     Route: 048
     Dates: start: 20140212
  3. SOVALDI [Concomitant]
     Dosage: 400 MG, QD
     Route: 048
     Dates: start: 20140211
  4. CHERATUSSIN AC [Concomitant]
     Dosage: 2 TSP, Q6H, PRN
     Dates: start: 201402
  5. CHERATUSSIN AC [Concomitant]
     Dosage: 2 TSP AT BEDTIME
     Dates: start: 201402
  6. IBUPROFEN [Concomitant]
     Dosage: 200 MG, PRN
  7. IBUPROFEN [Concomitant]
     Dosage: 200 MG, Q6H, PRN
     Dates: start: 201402
  8. IBUPROFEN [Concomitant]
     Dosage: 200 MG, BID
     Dates: start: 201402
  9. IBUPROFEN [Concomitant]
     Dosage: 4 TAB PRN
     Dates: start: 201403
  10. OMEPRAZOLE [Concomitant]
     Dosage: 20 MG, QAM
     Route: 048
  11. ATIVAN [Concomitant]
     Indication: ANXIETY
     Dosage: 0.5 MG, BID
     Route: 048
  12. ATIVAN [Concomitant]
     Indication: DEPRESSION
     Dosage: 0.5 MG, HS
     Route: 048
     Dates: start: 201402
  13. ATIVAN [Concomitant]
     Dosage: 0.5 MG, PRN
     Route: 048
     Dates: start: 201402
  14. ATIVAN [Concomitant]
     Dosage: 0.5 MG, QD
     Route: 048
     Dates: start: 201402
  15. GUAIFENESIN [Concomitant]
     Dosage: 1 TSP, PRN
     Route: 048
     Dates: start: 201402
  16. GUAIFENESIN [Concomitant]
     Dosage: 2 TSP, PRN
     Dates: start: 201402

REACTIONS (48)
  - Nasal discharge discolouration [Recovering/Resolving]
  - Epistaxis [Unknown]
  - Blood count [Unknown]
  - Dry throat [Recovering/Resolving]
  - Bone pain [Unknown]
  - Pneumothorax [Recovered/Resolved]
  - Neck pain [Recovering/Resolving]
  - Rhinorrhoea [Recovering/Resolving]
  - Eye pain [Recovering/Resolving]
  - Epistaxis [Recovering/Resolving]
  - Influenza [Unknown]
  - Pain in extremity [Recovering/Resolving]
  - Pain in extremity [Recovered/Resolved]
  - Blood triglycerides increased [Unknown]
  - Rash macular [Unknown]
  - Abdominal pain upper [Recovering/Resolving]
  - Anxiety [Unknown]
  - Chest pain [Unknown]
  - Insomnia [Recovering/Resolving]
  - Influenza like illness [Unknown]
  - Pyrexia [Recovering/Resolving]
  - Chills [Recovering/Resolving]
  - Arthralgia [Recovering/Resolving]
  - Cough [Recovering/Resolving]
  - Cough [Recovering/Resolving]
  - Fatigue [Recovering/Resolving]
  - Injection site erythema [Unknown]
  - Injection site reaction [Unknown]
  - Depression [Unknown]
  - Chills [Recovering/Resolving]
  - Chills [Recovered/Resolved]
  - Fatigue [Unknown]
  - Dyspnoea [Unknown]
  - Anaemia [Unknown]
  - Dyspnoea [Recovered/Resolved]
  - Cough [Recovering/Resolving]
  - Influenza like illness [Recovering/Resolving]
  - Fatigue [Unknown]
  - Pyrexia [Recovering/Resolving]
  - Irritability [Unknown]
  - Depression [Unknown]
  - Anaemia [Unknown]
  - Blood triglycerides increased [Unknown]
  - Injection site erythema [Unknown]
  - Injection site pruritus [Unknown]
  - Pneumothorax [Recovered/Resolved]
  - Chest pain [Recovered/Resolved]
  - Injection site pain [Recovered/Resolved]
